FAERS Safety Report 18744367 (Version 1)
Quarter: 2021Q1

REPORT INFORMATION
  Report Type: Spontaneous
  Country: IT (occurrence: IT)
  Receive Date: 20210114
  Receipt Date: 20210114
  Transmission Date: 20210419
  Serious: Yes (Other)
  Sender: FDA-Public Use
  Company Number: IT-AUROBINDO-AUR-APL-2018-042504

PATIENT
  Age: 6 Decade
  Sex: Female

DRUGS (10)
  1. EXEMESTANE. [Suspect]
     Active Substance: EXEMESTANE
     Indication: MALIGNANT NEOPLASM PROGRESSION
     Dosage: 25 MILLIGRAM, ONCE A DAY, PROGRESSION OF PRE?EXISTING CANCER
     Route: 065
  2. ERIBULIN MESYLATE [Suspect]
     Active Substance: ERIBULIN MESYLATE
     Indication: INVASIVE LOBULAR BREAST CARCINOMA
     Dosage: 1.23 MILLIGRAM/SQ. METER, ADMINISTERED ON DAYS 1 AND 8 OF A 21?DAY CYCLE
     Route: 065
  3. ZOLEDRONIC ACID [Suspect]
     Active Substance: ZOLEDRONIC ACID
     Indication: INVASIVE LOBULAR BREAST CARCINOMA
     Dosage: FIRST LINE TREATMENT
     Route: 065
     Dates: end: 201502
  4. EVEROLIMUS. [Suspect]
     Active Substance: EVEROLIMUS
     Indication: INVASIVE LOBULAR BREAST CARCINOMA
     Dosage: 10 MILLIGRAM, ONCE A DAY, 10 MG/DIE
     Route: 065
  5. PACLITAXEL. [Suspect]
     Active Substance: PACLITAXEL
     Indication: INVASIVE LOBULAR BREAST CARCINOMA
     Dosage: 260 MILLIGRAM/SQ. METER, TRI?WEEKLY, FIRST LINE TREATMENT
     Route: 065
     Dates: end: 201502
  6. PACLITAXEL. [Suspect]
     Active Substance: PACLITAXEL
     Indication: MALIGNANT NEOPLASM PROGRESSION
  7. EVEROLIMUS. [Suspect]
     Active Substance: EVEROLIMUS
     Indication: MALIGNANT NEOPLASM PROGRESSION
     Dosage: 10 MILLIGRAM, ONCE A DAY, FIRST LINE TREATMENT
     Route: 065
  8. EXEMESTANE. [Suspect]
     Active Substance: EXEMESTANE
     Indication: INVASIVE LOBULAR BREAST CARCINOMA
     Dosage: 25 MILLIGRAM, ONCE A DAY, 25 MG/DIE
     Route: 065
  9. ZOLEDRONIC ACID [Suspect]
     Active Substance: ZOLEDRONIC ACID
     Indication: MALIGNANT NEOPLASM PROGRESSION
  10. FULVESTRANT. [Concomitant]
     Active Substance: FULVESTRANT
     Indication: DISEASE PROGRESSION
     Dosage: 500 MILLIGRAM, SECOND LINE THERAPY
     Route: 065
     Dates: start: 201311

REACTIONS (4)
  - Asthenia [Unknown]
  - Neuropathy peripheral [Unknown]
  - Mucosal inflammation [Unknown]
  - Alopecia [Unknown]
